FAERS Safety Report 8307126-0 (Version None)
Quarter: 2012Q2

REPORT INFORMATION
  Report Type: 
  Country: None (occurrence: None)
  Receive Date: 20120424
  Receipt Date: 20120419
  Transmission Date: 20120825
  Serious: Yes (Other)
  Sender: FDA-Public Use
  Company Number: US-PFIZER INC-2012098153

PATIENT
  Sex: Female
  Weight: 42.63 kg

DRUGS (4)
  1. LYRICA [Suspect]
     Indication: TRIGEMINAL NEURALGIA
     Dosage: 50 MG, 2X/DAY
     Route: 048
     Dates: start: 20060201
  2. LYRICA [Suspect]
     Dosage: 150 MG
     Route: 048
     Dates: start: 20060101
  3. LYRICA [Suspect]
     Dosage: 75 MG, 2X/DAY
     Route: 048
     Dates: start: 20110101
  4. XANAX [Concomitant]
     Indication: SLEEP DISORDER
     Dosage: 1 MG, 2X/DAY
     Route: 048

REACTIONS (2)
  - SCIATICA [None]
  - UTERINE LEIOMYOMA [None]
